FAERS Safety Report 10510599 (Version 1)
Quarter: 2014Q3

REPORT INFORMATION
  Report Type: Spontaneous
  Country: US (occurrence: None)
  Receive Date: 20140915
  Receipt Date: 20140915
  Transmission Date: 20150326
  Serious: Yes (Other)
  Sender: FDA-Public Use
  Company Number: JPI-P-034176

PATIENT
  Age: 17 Year
  Sex: Female

DRUGS (2)
  1. DULOXETINE (DULOXETINE) (DULOXETINE) [Suspect]
     Active Substance: DULOXETINE
     Indication: DEPRESSION
     Dosage: UNKNOWN, SINGLE
  2. XYREM [Suspect]
     Active Substance: SODIUM OXYBATE
     Indication: NARCOLEPSY
     Dosage: UNKNOWN, SINGLE, ORAL
     Route: 048
     Dates: start: 20130710, end: 201307

REACTIONS (2)
  - Depression [None]
  - Condition aggravated [None]

NARRATIVE: CASE EVENT DATE: 201307
